FAERS Safety Report 14111727 (Version 1)
Quarter: 2017Q4

REPORT INFORMATION
  Report Type: Spontaneous
  Country: US (occurrence: None)
  Receive Date: 20171020
  Receipt Date: 20171020
  Transmission Date: 20180321
  Serious: Yes (Death)
  Sender: FDA-Public Use
  Company Number: None

PATIENT
  Age: 44 Year
  Sex: Female

DRUGS (4)
  1. FASLODEX [Concomitant]
     Active Substance: FULVESTRANT
  2. CAPECITABINE 500MG TAB [Suspect]
     Active Substance: CAPECITABINE
     Dosage: QD AM FOR 21 DAYS
     Route: 048
     Dates: start: 20170823, end: 20171007
  3. ATIVAN [Concomitant]
     Active Substance: LORAZEPAM
  4. OXYCONTIN [Concomitant]
     Active Substance: OXYCODONE HYDROCHLORIDE

REACTIONS (1)
  - Death [None]

NARRATIVE: CASE EVENT DATE: 20171007
